FAERS Safety Report 21585902 (Version 3)
Quarter: 2022Q4

REPORT INFORMATION
  Report Type: Spontaneous
  Country: US (occurrence: US)
  Receive Date: 20221111
  Receipt Date: 20221216
  Transmission Date: 20230112
  Serious: Yes (Hospitalization)
  Sender: FDA-Public Use
  Company Number: US-BAUSCH-BL-2022-015074

PATIENT
  Sex: Female

DRUGS (1)
  1. MURO 128 [Suspect]
     Active Substance: SODIUM CHLORIDE
     Indication: Product used for unknown indication
     Route: 047
     Dates: start: 202204, end: 202204

REACTIONS (5)
  - Dysphagia [Unknown]
  - Hypoacusis [Unknown]
  - Periorbital swelling [Not Recovered/Not Resolved]
  - Dark circles under eyes [Not Recovered/Not Resolved]
  - Eyelid margin crusting [Unknown]

NARRATIVE: CASE EVENT DATE: 20220401
